FAERS Safety Report 20745895 (Version 2)
Quarter: 2022Q2

REPORT INFORMATION
  Report Type: Report from Study
  Country: US (occurrence: US)
  Receive Date: 20220425
  Receipt Date: 20220426
  Transmission Date: 20220721
  Serious: Yes (Life-Threatening, Other)
  Sender: FDA-Public Use
  Company Number: US-AMGEN-USACT2022070640

PATIENT
  Age: 41 Year
  Sex: Male

DRUGS (6)
  1. DENOSUMAB [Suspect]
     Active Substance: DENOSUMAB
     Indication: Bone giant cell tumour
     Dosage: UNK
     Route: 058
     Dates: start: 20180206
  2. CALCIUM [Concomitant]
     Active Substance: CALCIUM
     Dosage: 500 MILLIGRAM
     Route: 048
     Dates: start: 20081211, end: 20220421
  3. CHOLECALCIFEROL [Concomitant]
     Active Substance: CHOLECALCIFEROL
     Dosage: 400 INTERNATIONAL UNIT
     Route: 048
     Dates: start: 20081211, end: 20220421
  4. FISH OIL [Concomitant]
     Active Substance: FISH OIL
     Dosage: 1 UNK
     Route: 048
     Dates: start: 200901, end: 20220421
  5. CREATINE [Concomitant]
     Active Substance: CREATINE
     Dosage: 1 UNK
     Route: 048
     Dates: start: 201501, end: 20220421
  6. PROTEIN [Concomitant]
     Active Substance: PROTEIN
     Dosage: 2 UNK
     Route: 048
     Dates: start: 201501, end: 20220421

REACTIONS (1)
  - Bone cancer [Unknown]

NARRATIVE: CASE EVENT DATE: 20220414
